FAERS Safety Report 8499109-5 (Version None)
Quarter: 2012Q2

REPORT INFORMATION
  Report Type: 
  Country: None (occurrence: None)
  Receive Date: 20120405
  Receipt Date: 20100212
  Transmission Date: 20120825
  Serious: Yes (Hospitalization, Other)
  Sender: FDA-Public Use
  Company Number: PHHY2010US06849

PATIENT
  Age: 75 Year
  Sex: Female
  Weight: 40 kg

DRUGS (10)
  1. FLEXERIL [Concomitant]
  2. OMEPRAZOLE [Concomitant]
  3. ADAVAN (LORAZEPAM) [Concomitant]
  4. RECLAST [Suspect]
     Indication: OSTEOPOROSIS
     Dosage: INFUSION
     Dates: start: 20100125, end: 20100125
  5. LORAZEPAM [Concomitant]
  6. CALCIUM CARBONATE [Suspect]
  7. CARDIL (DILTIAZEM HYDROCHLORIDE) [Concomitant]
  8. RANITIDINE HYDROCHLORIDE [Concomitant]
  9. VITAMIN D [Concomitant]
  10. ACETAMINOPHEN [Concomitant]

REACTIONS (6)
  - MUSCLE SPASMS [None]
  - PAIN IN EXTREMITY [None]
  - DYSPHAGIA [None]
  - MUSCULOSKELETAL PAIN [None]
  - BLOOD CALCIUM DECREASED [None]
  - MOVEMENT DISORDER [None]
